FAERS Safety Report 5794554-0 (Version None)
Quarter: 2008Q2

REPORT INFORMATION
  Report Type: 
  Country: None (occurrence: None)
  Receive Date: 20080625
  Receipt Date: 20080616
  Transmission Date: 20081010
  Serious: Yes (Death)
  Sender: FDA-Public Use
  Company Number: GXKR2008GB04053

PATIENT
  Age: 66 Year
  Sex: Female

DRUGS (5)
  1. DILTIAZEM [Suspect]
     Indication: DRUG USE FOR UNKNOWN INDICATION
  2. MIRTAZAPINE [Suspect]
     Indication: DRUG USE FOR UNKNOWN INDICATION
  3. AMITRIPTLINE HYDROCHLORIDE TAB [Suspect]
     Indication: DRUG USE FOR UNKNOWN INDICATION
  4. ANADIN EXTRA (ACETYLSALCYLIC ACID, CAFFEINE, PARACETAMOL) [Suspect]
     Indication: DRUG USE FOR UNKNOWN INDICATION
  5. ZOPICLONE (ZOPICLONE) [Suspect]
     Indication: SLEEP DISORDER
     Dosage: 7.5 MG, QD, ORAL
     Route: 048

REACTIONS (4)
  - COMPLETED SUICIDE [None]
  - HEPATIC STEATOSIS [None]
  - INTENTIONAL OVERDOSE [None]
  - PULMONARY OEDEMA [None]
